FAERS Safety Report 25761403 (Version 1)
Quarter: 2025Q3

REPORT INFORMATION
  Report Type: Spontaneous
  Country: EU (occurrence: EU)
  Receive Date: 20250904
  Receipt Date: 20250904
  Transmission Date: 20251021
  Serious: Yes (Disabling)
  Sender: BAYER HEALTHCARE PHARMACEUTICALS INC.
  Company Number: None

PATIENT
  Age: 50 Year
  Sex: Female
  Weight: 62 kg

DRUGS (1)
  1. MIRENA [Suspect]
     Active Substance: LEVONORGESTREL
     Indication: Adenomyosis
     Dosage: 20?G/DAY
     Route: 015
     Dates: start: 20250310, end: 20250424

REACTIONS (17)
  - Depressed mood [Unknown]
  - Feeling of body temperature change [Unknown]
  - Fat redistribution [Unknown]
  - Hypotonia [Unknown]
  - Hormone level abnormal [Unknown]
  - Neuralgia [Unknown]
  - Fatigue [Unknown]
  - Oedema [Not Recovered/Not Resolved]
  - Hyperhidrosis [Unknown]
  - Loss of libido [Not Recovered/Not Resolved]
  - Abdominal pain [Not Recovered/Not Resolved]
  - Vulvovaginal dryness [Not Recovered/Not Resolved]
  - Constipation [Not Recovered/Not Resolved]
  - Pain in extremity [Not Recovered/Not Resolved]
  - Pelvic pain [Not Recovered/Not Resolved]
  - Nausea [Not Recovered/Not Resolved]
  - Dysgeusia [Not Recovered/Not Resolved]

NARRATIVE: CASE EVENT DATE: 20250101
